FAERS Safety Report 17043902 (Version 1)
Quarter: 2019Q4

REPORT INFORMATION
  Report Type: Spontaneous
  Country: US (occurrence: US)
  Receive Date: 20191115
  Receipt Date: 20191115
  Transmission Date: 20200122
  Serious: Yes (Life-Threatening, Disabling)
  Sender: FDA-Public Use
  Company Number: None

PATIENT
  Age: 43 Year
  Sex: Female
  Weight: 63 kg

DRUGS (1)
  1. BOTOX [Suspect]
     Active Substance: ONABOTULINUMTOXINA
     Indication: SPHINCTER OF ODDI DYSFUNCTION
     Dosage: ?          OTHER ROUTE:INJECTED INTO RECTUM  SPHYINCTER MUSCLE?

REACTIONS (20)
  - Hypoaesthesia [None]
  - Muscular weakness [None]
  - Palpitations [None]
  - Depression [None]
  - Anal sphincterotomy [None]
  - Tinnitus [None]
  - Neuralgia [None]
  - Paraesthesia [None]
  - Burning sensation [None]
  - Hyperacusis [None]
  - Feeling abnormal [None]
  - Dyspnoea [None]
  - Hyperexplexia [None]
  - Sensory loss [None]
  - Hyperaesthesia [None]
  - Injection site pain [None]
  - Haemorrhoid operation [None]
  - Dizziness [None]
  - Derealisation [None]
  - Anxiety [None]

NARRATIVE: CASE EVENT DATE: 20181220
